FAERS Safety Report 5720447-0 (Version None)
Quarter: 2008Q2

REPORT INFORMATION
  Report Type: 
  Country: None (occurrence: None)
  Receive Date: 20080423
  Receipt Date: 20070727
  Transmission Date: 20081010
  Serious: Yes (Hospitalization)
  Sender: FDA-Public Use
  Company Number: 240089

PATIENT
  Age: 33 Year
  Sex: Female

DRUGS (1)
  1. AVASTIN [Suspect]
     Indication: COLORECTAL CANCER
     Dosage: Q2W, INTRAVENOUS
     Route: 042

REACTIONS (3)
  - CHILLS [None]
  - INFECTION [None]
  - NIGHT SWEATS [None]
